FAERS Safety Report 5160675-9 (Version None)
Quarter: 2006Q4

REPORT INFORMATION
  Report Type: 
  Country: None (occurrence: None)
  Receive Date: 20061121
  Receipt Date: 20061106
  Transmission Date: 20070319
  Serious: Yes (Hospitalization)
  Sender: FDA-Public Use
  Company Number: 232181

PATIENT
  Age: 79 Year
  Sex: Female
  Weight: 55 kg

DRUGS (8)
  1. AVASTIN [Suspect]
     Indication: COLORECTAL CANCER
     Dosage: 274 MG, Q4W,
     Dates: start: 20061012, end: 20061012
  2. OXALIPLATIN [Suspect]
     Indication: COLORECTAL CANCER
     Dosage: 132 MG, Q4W,
     Dates: start: 20061012, end: 20061012
  3. IRINOTECAN HCL [Suspect]
     Indication: COLORECTAL CANCER
     Dosage: 233 MG, Q4W,
     Dates: start: 20061012, end: 20061012
  4. PALONOSETRON (PALONOSETRON) [Concomitant]
  5. DARBEPOETIN ALFA (DARBEPOETIN ALFA) [Concomitant]
  6. DEXAMETHASONE TAB [Concomitant]
  7. LOPERAMIDE [Concomitant]
  8. KYTRIL [Concomitant]

REACTIONS (7)
  - AGRANULOCYTOSIS [None]
  - ASTHENIA [None]
  - CANDIDIASIS [None]
  - DEHYDRATION [None]
  - DIARRHOEA [None]
  - FATIGUE [None]
  - ORAL INTAKE REDUCED [None]
